FAERS Safety Report 7568745-2 (Version None)
Quarter: 2011Q2

REPORT INFORMATION
  Report Type: 
  Country: None (occurrence: None)
  Receive Date: 20110623
  Receipt Date: 20110622
  Transmission Date: 20111010
  Serious: Yes (Other)
  Sender: FDA-Public Use
  Company Number: DE-AMGEN-DEUSP2011031750

PATIENT
  Sex: Male

DRUGS (1)
  1. NEUPOGEN [Suspect]
     Indication: HAEMATOPOIETIC STEM CELL MOBILISATION
     Dosage: 48 MILLION UNIT, UNK

REACTIONS (3)
  - C-REACTIVE PROTEIN INCREASED [None]
  - BLOOD URIC ACID INCREASED [None]
  - GOUT [None]
